FAERS Safety Report 21402857 (Version 1)
Quarter: 2022Q4

REPORT INFORMATION
  Report Type: Report from Study
  Country: US (occurrence: US)
  Receive Date: 20221003
  Receipt Date: 20221003
  Transmission Date: 20230113
  Serious: Yes (Death, Other)
  Sender: FDA-Public Use
  Company Number: US-MYLANLABS-2022M1110461

PATIENT
  Age: 20 Year
  Sex: Female

DRUGS (15)
  1. MITOXANTRONE [Suspect]
     Active Substance: MITOXANTRONE HYDROCHLORIDE
     Indication: Acute myeloid leukaemia
     Dosage: UNK, SECOND LINE THERAPY
     Route: 065
  2. FLUDARABINE [Suspect]
     Active Substance: FLUDARABINE PHOSPHATE
     Indication: Acute myeloid leukaemia
     Dosage: UNK, FIRST LINE THERAPY
     Route: 065
  3. CYTARABINE [Suspect]
     Active Substance: CYTARABINE
     Indication: Acute myeloid leukaemia
     Dosage: UNK, FIRST LINE THERAPY
     Route: 065
  4. CYTARABINE [Suspect]
     Active Substance: CYTARABINE
     Dosage: UNK, SECOND LINE THERAPY
     Route: 065
  5. SUNITINIB [Suspect]
     Active Substance: SUNITINIB
     Indication: Acute myeloid leukaemia
     Dosage: UNK, FOURTH LINE THERAPY
     Route: 065
  6. SUNITINIB [Suspect]
     Active Substance: SUNITINIB
     Dosage: UNK, FIFTH LINE THERAPY
     Route: 065
  7. SUNITINIB [Suspect]
     Active Substance: SUNITINIB
     Dosage: UNK, SIXTH LINE THERAPY
     Route: 065
  8. MIDOSTAURIN [Suspect]
     Active Substance: MIDOSTAURIN
     Indication: Acute myeloid leukaemia
     Dosage: UNK, SECOND LINE THERAPY
     Route: 065
  9. DECITABINE [Suspect]
     Active Substance: DECITABINE
     Indication: Acute myeloid leukaemia
     Dosage: UNK, FOURTH LINE THERAPY
     Route: 065
  10. DECITABINE [Suspect]
     Active Substance: DECITABINE
     Dosage: UNK, FIFTH LINE THERAPY
     Route: 065
  11. DECITABINE [Suspect]
     Active Substance: DECITABINE
     Dosage: UNK, SIXTH LINE THERAPY
     Route: 065
  12. VORINOSTAT [Suspect]
     Active Substance: VORINOSTAT
     Indication: Acute myeloid leukaemia
     Dosage: UNK, FOURTH LINE THERAPY
     Route: 065
  13. VENETOCLAX [Suspect]
     Active Substance: VENETOCLAX
     Indication: Acute myeloid leukaemia
     Dosage: UNK, FIFTH LINE THERAPY
     Route: 065
  14. VENETOCLAX [Suspect]
     Active Substance: VENETOCLAX
     Dosage: UNK, SIXTH LINE THERAPY
     Route: 065
  15. GILTERITINIB [Suspect]
     Active Substance: GILTERITINIB
     Indication: Acute myeloid leukaemia
     Dosage: 120 MILLIGRAM, QD, SIXTH LINE THERAPY; FOR 1 CYCLE
     Route: 065

REACTIONS (2)
  - Death [Fatal]
  - Drug ineffective [Unknown]
